FAERS Safety Report 6287982-0 (Version None)
Quarter: 2009Q3

REPORT INFORMATION
  Report Type: 
  Country: None (occurrence: None)
  Receive Date: 20090729
  Receipt Date: 20090720
  Transmission Date: 20100115
  Serious: Yes (Hospitalization, Other)
  Sender: FDA-Public Use
  Company Number: US-AMGEN-QUU356744

PATIENT
  Sex: Male

DRUGS (2)
  1. ENBREL [Suspect]
     Indication: RHEUMATOID ARTHRITIS
     Route: 058
     Dates: start: 20031201
  2. METHOTREXATE [Concomitant]
     Route: 048

REACTIONS (4)
  - ABDOMINAL MASS [None]
  - DIVERTICULITIS [None]
  - PNEUMONIA PNEUMOCOCCAL [None]
  - STAPHYLOCOCCAL INFECTION [None]
